FAERS Safety Report 17852297 (Version 1)
Quarter: 2020Q2

REPORT INFORMATION
  Report Type: Report from Study
  Country: US (occurrence: US)
  Receive Date: 20200602
  Receipt Date: 20200602
  Transmission Date: 20200714
  Serious: Yes (Other)
  Sender: FDA-Public Use
  Company Number: US-BRISTOL-MYERS SQUIBB COMPANY-BMS-2020-042567

PATIENT
  Age: 46 Year
  Sex: Male

DRUGS (2)
  1. NIVOLUMAB [Suspect]
     Active Substance: NIVOLUMAB
     Indication: MALIGNANT MELANOMA
     Dosage: 1 MG/KG EVERY 3 WEEKS FOR A TOTAL OF THREE CYCLES
     Route: 065
     Dates: end: 201802
  2. IPILIMUMAB [Suspect]
     Active Substance: IPILIMUMAB
     Indication: MALIGNANT MELANOMA
     Dosage: 3 MG/KG EVERY 3 WEEKS FOR A TOTAL OF THREE CYCLES
     Route: 065

REACTIONS (4)
  - Dry mouth [Unknown]
  - Pneumonitis [Unknown]
  - Dry eye [Unknown]
  - Sjogren^s syndrome [Unknown]
